FAERS Safety Report 4830635-3 (Version None)
Quarter: 2005Q4

REPORT INFORMATION
  Report Type: 
  Country: None (occurrence: None)
  Receive Date: 20051114
  Receipt Date: 20051110
  Transmission Date: 20060501
  Serious: Yes (Other)
  Sender: FDA-Public Use
  Company Number: EC-2005-019291

PATIENT
  Age: 29 Year
  Sex: Female
  Weight: 50.0318 kg

DRUGS (2)
  1. YASMIN [Suspect]
     Indication: ORAL CONTRACEPTION
     Dosage: 1 TAB(S) 1X/DAY ORAL
     Route: 048
     Dates: start: 20040701, end: 20050401
  2. YASMIN [Suspect]
     Indication: ORAL CONTRACEPTION
     Dosage: 1 TAB(S) 1X/DAY ORAL
     Route: 048
     Dates: start: 20050701, end: 20050701

REACTIONS (2)
  - ECCHYMOSIS [None]
  - VARICOSE VEIN [None]
